FAERS Safety Report 9847893 (Version 1)
Quarter: 2014Q1

REPORT INFORMATION
  Report Type: Spontaneous
  Country: US (occurrence: None)
  Receive Date: 20140123
  Receipt Date: 20140123
  Transmission Date: 20141002
  Serious: No
  Sender: FDA-Public Use
  Company Number: None

PATIENT
  Age: 62 Year
  Sex: Male
  Weight: 85.8 kg

DRUGS (1)
  1. ALLOPURINOL [Suspect]
     Dates: start: 20130326, end: 20130519

REACTIONS (10)
  - Chromaturia [None]
  - Pruritus [None]
  - Pyrexia [None]
  - Chills [None]
  - Oropharyngeal pain [None]
  - Lymphadenopathy [None]
  - Liver function test abnormal [None]
  - Jaundice [None]
  - Drug reaction with eosinophilia and systemic symptoms [None]
  - Lymphocytosis [None]
